FAERS Safety Report 8607858-0 (Version None)
Quarter: 2012Q3

REPORT INFORMATION
  Report Type: 
  Country: None (occurrence: None)
  Receive Date: 20120821
  Receipt Date: 20120817
  Transmission Date: 20120928
  Serious: Yes (Hospitalization, Other)
  Sender: FDA-Public Use
  Company Number: PHHY2012ZA071467

PATIENT
  Sex: Female

DRUGS (7)
  1. TEGRETOL [Suspect]
     Dosage: 200MG THREE TIMES DAILY
     Dates: start: 20120301
  2. TEGRETOL [Suspect]
     Dosage: 200 MG DAILY
  3. TEGRETOL [Suspect]
     Dosage: 50 MG DAILY
  4. TEGRETOL [Suspect]
     Dosage: 200 MG, UNK
  5. TEGRETOL [Suspect]
     Dosage: 200 MG
  6. TEGRETOL [Suspect]
     Dosage: 200MG TWICE DAILY
  7. TEGRETOL [Suspect]
     Dosage: 200MG TWICE DAILY
     Dates: end: 20120501

REACTIONS (3)
  - MULTIPLE SCLEROSIS RELAPSE [None]
  - ABORTION SPONTANEOUS [None]
  - MATERNAL EXPOSURE TIMING UNSPECIFIED [None]
